FAERS Safety Report 15771975 (Version 3)
Quarter: 2020Q3

REPORT INFORMATION
  Report Type: Spontaneous
  Country: US (occurrence: US)
  Receive Date: 20181228
  Receipt Date: 20200722
  Transmission Date: 20201102
  Serious: No
  Sender: FDA-Public Use
  Company Number: US-SA-2018SA393864

PATIENT

DRUGS (8)
  1. DUPIXENT [Suspect]
     Active Substance: DUPILUMAB
     Indication: DERMATITIS ATOPIC
     Dosage: 300 MG, QOW
     Route: 058
     Dates: start: 201811
  2. DIAZEPAM. [Concomitant]
     Active Substance: DIAZEPAM
  3. DUPIXENT [Suspect]
     Active Substance: DUPILUMAB
     Dosage: 300 MG, QOW
     Route: 058
     Dates: start: 20190214, end: 2020
  4. AZELASTINE. [Concomitant]
     Active Substance: AZELASTINE HYDROCHLORIDE
  5. FLUTICASONE. [Concomitant]
     Active Substance: FLUTICASONE
  6. LORATADINE. [Concomitant]
     Active Substance: LORATADINE
  7. DUPIXENT [Suspect]
     Active Substance: DUPILUMAB
     Dosage: 300 MG, QOW
     Route: 058
     Dates: start: 2020
  8. ZOLPIDEM [Concomitant]
     Active Substance: ZOLPIDEM TARTRATE

REACTIONS (9)
  - Pruritus [Unknown]
  - Eczema [Unknown]
  - Arthralgia [Unknown]
  - Muscle spasms [Unknown]
  - Pain [Unknown]
  - Product dose omission issue [Unknown]
  - Pain in extremity [Unknown]
  - Discomfort [Unknown]
  - Asthma [Unknown]

NARRATIVE: CASE EVENT DATE: 2018
